FAERS Safety Report 9086621 (Version 1)
Quarter: 2013Q1

REPORT INFORMATION
  Report Type: Report from Study
  Country: US (occurrence: US)
  Receive Date: 20130131
  Receipt Date: 20130131
  Transmission Date: 20140127
  Serious: No
  Sender: FDA-Public Use
  Company Number: US-ABBOTT-12P-163-0999588-00

PATIENT
  Sex: Male

DRUGS (9)
  1. HUMIRA [Suspect]
     Indication: PSORIASIS
     Dates: start: 201203
  2. HUMIRA [Suspect]
     Indication: PSORIATIC ARTHROPATHY
  3. NAPROXEN [Suspect]
     Indication: PRODUCT USED FOR UNKNOWN INDICATION
     Dates: end: 201210
  4. PREVASTATIN [Concomitant]
     Indication: BLOOD CHOLESTEROL INCREASED
  5. LEXAPRO [Concomitant]
     Indication: ANXIETY
  6. LEXAPRO [Concomitant]
     Indication: DEPRESSION
  7. ADDERALL [Concomitant]
     Indication: SLEEP DISORDER
  8. ADDERALL [Concomitant]
     Indication: FATIGUE
  9. ADDERALL [Concomitant]
     Indication: CHANGE IN SUSTAINED ATTENTION

REACTIONS (2)
  - Increased tendency to bruise [Not Recovered/Not Resolved]
  - Hepatic enzyme increased [Unknown]
